FAERS Safety Report 9014765 (Version 1)
Quarter: 2013Q1

REPORT INFORMATION
  Report Type: Spontaneous
  Country: US (occurrence: US)
  Receive Date: 20130115
  Receipt Date: 20130115
  Transmission Date: 20140127
  Serious: Yes (Other)
  Sender: FDA-Public Use
  Company Number: US-PFIZER INC-2013015194

PATIENT
  Age: 71 Year
  Sex: Female
  Weight: 68 kg

DRUGS (3)
  1. LIPITOR [Suspect]
     Indication: BLOOD CHOLESTEROL INCREASED
     Dosage: 80 MG, 1X/DAY
     Route: 048
     Dates: start: 200612, end: 20130104
  2. IRON [Concomitant]
     Dosage: UNK
  3. PLAVIX [Concomitant]
     Dosage: 75 MG, 1X/DAY

REACTIONS (13)
  - Renal artery stenosis [Unknown]
  - Arthritis [Unknown]
  - Muscle spasms [Unknown]
  - Back pain [Unknown]
  - Intervertebral disc disorder [Unknown]
  - X-ray abnormal [Unknown]
  - Nuclear magnetic resonance imaging abnormal [Unknown]
  - Computerised tomogram abnormal [Unknown]
  - Laboratory test abnormal [Unknown]
  - Blood pressure abnormal [Unknown]
  - Weight increased [Unknown]
  - Swelling [Unknown]
  - Muscular weakness [Unknown]
